FAERS Safety Report 13925645 (Version 2)
Quarter: 2017Q4

REPORT INFORMATION
  Report Type: Spontaneous
  Country: US (occurrence: US)
  Receive Date: 20170831
  Receipt Date: 20171130
  Transmission Date: 20180320
  Serious: No
  Sender: FDA-Public Use
  Company Number: US-SA-2017SA153524

PATIENT
  Age: 49 Year
  Sex: Male

DRUGS (1)
  1. KEVZARA [Suspect]
     Active Substance: SARILUMAB
     Indication: RHEUMATOID ARTHRITIS
     Dosage: DOSE STRENGTH- 150 MG/1,14 ML
     Route: 065
     Dates: start: 201706

REACTIONS (1)
  - Injection site bruising [Not Recovered/Not Resolved]
